FAERS Safety Report 7300107-5 (Version None)
Quarter: 2011Q1

REPORT INFORMATION
  Report Type: 
  Country: None (occurrence: None)
  Receive Date: 20110217
  Receipt Date: 20110216
  Transmission Date: 20110831
  Serious: Yes (Hospitalization, Other)
  Sender: FDA-Public Use
  Company Number: US-ABBOTT-10P-163-0680174-00

PATIENT
  Sex: Female

DRUGS (1)
  1. LUPRON [Suspect]
     Indication: PRODUCT USED FOR UNKNOWN INDICATION

REACTIONS (12)
  - SALPINGO-OOPHORECTOMY BILATERAL [None]
  - HYSTERECTOMY [None]
  - MOOD SWINGS [None]
  - IRRITABILITY [None]
  - ANXIETY [None]
  - PANIC ATTACK [None]
  - DEPRESSION [None]
  - NERVOUSNESS [None]
  - MENOPAUSE [None]
  - HOT FLUSH [None]
  - INSOMNIA [None]
  - HOSPITALISATION [None]
